FAERS Safety Report 5850998-X (Version None)
Quarter: 2008Q3

REPORT INFORMATION
  Report Type: 
  Country: None (occurrence: None)
  Receive Date: 20080820
  Receipt Date: 20080813
  Transmission Date: 20090109
  Serious: Yes (Hospitalization)
  Sender: FDA-Public Use
  Company Number: US-WATSON-2008-04865

PATIENT
  Age: 76 Year
  Sex: Male

DRUGS (8)
  1. PRIMIDONE [Suspect]
     Indication: BIPOLAR DISORDER
     Dosage: UNK
  2. DIVALPROEX SODIUM [Suspect]
     Indication: BIPOLAR DISORDER
     Dosage: 1000 MG, TID
  3. QUETIAPINE [Concomitant]
  4. METOPROLOL TARTRATE [Concomitant]
  5. ATORVASTATIN [Concomitant]
  6. LISINOPRIL [Concomitant]
  7. LEVOTHYROXINE SODIUM [Concomitant]
  8. ACETYLSALICYLIC ACID SRT [Concomitant]

REACTIONS (1)
  - HYPERAMMONAEMIC ENCEPHALOPATHY [None]
